FAERS Safety Report 13868347 (Version 3)
Quarter: 2017Q4

REPORT INFORMATION
  Report Type: Spontaneous
  Country: US (occurrence: US)
  Receive Date: 20170815
  Receipt Date: 20171010
  Transmission Date: 20180320
  Serious: Yes (Hospitalization)
  Sender: FDA-Public Use
  Company Number: US-ASTRAZENECA-2017SE82140

PATIENT
  Age: 70 Year
  Sex: Female

DRUGS (2)
  1. NEXIUM 24HR [Suspect]
     Active Substance: ESOMEPRAZOLE MAGNESIUM
     Indication: REFLUX GASTRITIS
     Route: 048
     Dates: start: 201708, end: 201708
  2. NEXIUM 24HR [Suspect]
     Active Substance: ESOMEPRAZOLE MAGNESIUM
     Indication: REFLUX GASTRITIS
     Route: 048

REACTIONS (6)
  - Poor quality drug administered [Unknown]
  - Incorrect drug administration duration [Unknown]
  - Intentional product use issue [Unknown]
  - Dyspepsia [Unknown]
  - Drug ineffective [Unknown]
  - Product size issue [Unknown]

NARRATIVE: CASE EVENT DATE: 201708
